FAERS Safety Report 8452543-1 (Version None)
Quarter: 2012Q2

REPORT INFORMATION
  Report Type: 
  Country: None (occurrence: None)
  Receive Date: 20120620
  Receipt Date: 20120415
  Transmission Date: 20120825
  Serious: No
  Sender: FDA-Public Use
  Company Number: US-VERTEX PHARMACEUTICALS INC.-AE-2012-005433

PATIENT
  Sex: Male
  Weight: 95.34 kg

DRUGS (8)
  1. LANTIS/HUMALOG INSULINS [Concomitant]
     Indication: DIABETES MELLITUS
     Route: 058
  2. CRESTOR [Concomitant]
     Route: 048
  3. HYDROCHLOROTHIAZIDE [Concomitant]
     Indication: HYPERTENSION
     Route: 048
  4. RIBAVIRIN [Concomitant]
     Indication: HEPATITIS C
     Route: 048
     Dates: start: 20120406
  5. LISINOPRIL [Concomitant]
     Indication: HYPERTENSION
     Route: 048
  6. INCIVEK [Suspect]
     Indication: HEPATITIS C
     Route: 048
     Dates: start: 20120406
  7. PEGASYS [Concomitant]
     Indication: HEPATITIS C
     Route: 058
     Dates: start: 20120406
  8. TRADJENTI [Concomitant]
     Route: 048

REACTIONS (1)
  - OCULAR HYPERAEMIA [None]
